FAERS Safety Report 22005485 (Version 1)
Quarter: 2023Q1

REPORT INFORMATION
  Report Type: Spontaneous
  Country: GB (occurrence: GB)
  Receive Date: 20230217
  Receipt Date: 20230217
  Transmission Date: 20230418
  Serious: Yes (Other)
  Sender: FDA-Public Use
  Company Number: GB-AstraZeneca-2023A026166

PATIENT
  Sex: Female
  Weight: 61 kg

DRUGS (1)
  1. OMEPRAZOLE [Suspect]
     Active Substance: OMEPRAZOLE
     Indication: Product used for unknown indication
     Dosage: UNK
     Route: 048

REACTIONS (4)
  - Malignant neoplasm progression [Unknown]
  - Tumour marker increased [Unknown]
  - Blood alkaline phosphatase increased [Unknown]
  - Blood sodium decreased [Unknown]
